FAERS Safety Report 4550992-5 (Version None)
Quarter: 2005Q1

REPORT INFORMATION
  Report Type: 
  Country: None (occurrence: None)
  Receive Date: 20050113
  Receipt Date: 20030106
  Transmission Date: 20050727
  Serious: Yes (Hospitalization, Other)
  Sender: FDA-Public Use
  Company Number: PHFR2003GB00495

PATIENT
  Sex: Female

DRUGS (14)
  1. BONEFOS ^ASTRA^ [Suspect]
     Indication: BREAST CANCER
     Dosage: 1600MG/DAY
     Route: 048
     Dates: start: 20020201
  2. DICLOFENAC [Suspect]
     Indication: PAIN
     Dosage: 150MG/DAY
     Route: 065
  3. TEMAZEPAM [Concomitant]
     Dosage: 10MG/DAY
     Route: 048
     Dates: start: 20020201
  4. ANASTROZOLE [Concomitant]
     Indication: BREAST CANCER
     Dosage: 1MG/DAY
     Route: 048
     Dates: start: 20020201
  5. MORPHINE [Concomitant]
     Indication: PAIN
     Dosage: 100 MG, UNK
     Route: 048
  6. LANSOPRAZOLE [Concomitant]
     Indication: GASTROINTESTINAL DISORDER
     Dosage: 30MG/DAY
     Route: 048
  7. DIAZEPAM [Concomitant]
     Indication: MUSCLE RELAXANT THERAPY
     Dosage: 6MG/DAY
     Route: 048
  8. TRAZODONE HCL [Concomitant]
     Indication: DEPRESSION
     Dosage: 200MG/DAY
     Route: 048
  9. DEXAMETHASONE [Concomitant]
     Indication: APPETITE DISORDER
     Dosage: 4MG/DAY
     Route: 048
     Dates: start: 20020701
  10. GABAPENTIN [Concomitant]
     Indication: PAIN
     Dosage: 400MG/DAY
     Route: 048
     Dates: start: 20020801
  11. ACETAMINOPHEN [Concomitant]
     Indication: PAIN
     Dosage: 4G/DAY
     Route: 048
  12. MOVICOL [Concomitant]
     Dosage: 1 UNK, QD
     Route: 048
  13. BENZODIAZEPINES [Suspect]
     Route: 065
  14. OPIOIDS [Suspect]
     Route: 065

REACTIONS (9)
  - ACUTE PRERENAL FAILURE [None]
  - BLOOD CREATININE INCREASED [None]
  - BLOOD UREA INCREASED [None]
  - CONFUSIONAL STATE [None]
  - CREATININE RENAL CLEARANCE DECREASED [None]
  - DEHYDRATION [None]
  - DRUG INTERACTION [None]
  - DRUG LEVEL INCREASED [None]
  - SOMNOLENCE [None]
